FAERS Safety Report 21941635 (Version 1)
Quarter: 2023Q1

REPORT INFORMATION
  Report Type: Report from Study
  Country: US (occurrence: US)
  Receive Date: 20230202
  Receipt Date: 20230202
  Transmission Date: 20230417
  Serious: No
  Sender: FDA-Public Use
  Company Number: US-EXELIXIS-CABO-22055556

PATIENT
  Sex: Male

DRUGS (10)
  1. CABOMETYX [Suspect]
     Active Substance: CABOZANTINIB S-MALATE
     Indication: Renal cell carcinoma
     Dosage: 40 MG, QD
     Route: 048
     Dates: start: 202202
  2. CABOMETYX [Suspect]
     Active Substance: CABOZANTINIB S-MALATE
     Dosage: 20 MG, QD
     Route: 048
     Dates: start: 20220921
  3. CABOMETYX [Suspect]
     Active Substance: CABOZANTINIB S-MALATE
     Dosage: 20 MG, QD
     Route: 048
  4. OPDIVO [Suspect]
     Active Substance: NIVOLUMAB
     Indication: Renal cell carcinoma
     Dosage: UNK, Q4WEEKS
     Dates: start: 202202
  5. VITAMIN C [Concomitant]
     Active Substance: ASCORBIC ACID
  6. VITAMIN D3 [Concomitant]
     Active Substance: CHOLECALCIFEROL
  7. GARLIC [Concomitant]
     Active Substance: GARLIC
  8. HERBALS [Concomitant]
     Active Substance: HERBALS
  9. FISH OIL [Concomitant]
     Active Substance: FISH OIL
  10. SUPER BEETS [Concomitant]

REACTIONS (9)
  - Oral disorder [Not Recovered/Not Resolved]
  - Precancerous skin lesion [Unknown]
  - Diarrhoea [Recovering/Resolving]
  - Fatigue [Not Recovered/Not Resolved]
  - Taste disorder [Recovering/Resolving]
  - Blood pressure increased [Recovering/Resolving]
  - Erythema [Unknown]
  - COVID-19 [Unknown]
  - Product dose omission issue [Unknown]
